FAERS Safety Report 13273560 (Version 1)
Quarter: 2017Q1

REPORT INFORMATION
  Report Type: Spontaneous
  Country: FR (occurrence: FR)
  Receive Date: 20170227
  Receipt Date: 20170227
  Transmission Date: 20170428
  Serious: Yes (Hospitalization)
  Sender: FDA-Public Use
  Company Number: FR-PFIZER INC-2017080166

PATIENT
  Age: 34 Year
  Sex: Male

DRUGS (3)
  1. CANNABIS [Suspect]
     Active Substance: CANNABIS SATIVA SUBSP. INDICA TOP
     Dosage: 4 TO 5 JOINTS DAILY
     Route: 055
  2. NEURONTIN [Suspect]
     Active Substance: GABAPENTIN
     Dosage: 900 MG, 1X/DAY
     Route: 048
  3. TRILEPTAL [Suspect]
     Active Substance: OXCARBAZEPINE
     Dosage: 1200 MG, DAILY

REACTIONS (7)
  - Agitation [Unknown]
  - Logorrhoea [Unknown]
  - Feeling abnormal [Unknown]
  - Leukocytosis [Unknown]
  - Confusional state [Recovered/Resolved]
  - Drug dependence [Unknown]
  - Hallucination, visual [Unknown]

NARRATIVE: CASE EVENT DATE: 20161123
